FAERS Safety Report 7608326-5 (Version None)
Quarter: 2011Q3

REPORT INFORMATION
  Report Type: 
  Country: None (occurrence: None)
  Receive Date: 20110714
  Receipt Date: 20110606
  Transmission Date: 20111222
  Serious: Yes (Hospitalization)
  Sender: FDA-Public Use
  Company Number: FR-ASTRAZENECA-2009SE32028

PATIENT
  Age: 29104 Day
  Sex: Male

DRUGS (3)
  1. BETADINE [Suspect]
     Indication: INFECTION PROPHYLAXIS
     Route: 061
     Dates: start: 20091102, end: 20091102
  2. OXACILLIN [Suspect]
     Indication: PROPHYLAXIS
     Dosage: ONCE
     Route: 042
     Dates: start: 20091102, end: 20091102
  3. XYLOCAINE [Suspect]
     Indication: LOCAL ANAESTHESIA
     Dosage: ONCE
     Route: 042
     Dates: start: 20091102, end: 20091102

REACTIONS (4)
  - EYELID OEDEMA [None]
  - URTICARIA [None]
  - DYSPNOEA [None]
  - OROPHARYNGEAL DISCOMFORT [None]
